FAERS Safety Report 6779263-3 (Version None)
Quarter: 2010Q2

REPORT INFORMATION
  Report Type: 
  Country: None (occurrence: None)
  Receive Date: 20100618
  Receipt Date: 20100610
  Transmission Date: 20101027
  Serious: Yes (Hospitalization)
  Sender: FDA-Public Use
  Company Number: CN-ROCHE-708716

PATIENT
  Age: 52 Year
  Sex: Male

DRUGS (1)
  1. PEGINTERFERON ALFA-2A [Suspect]
     Indication: HEPATITIS C
     Route: 058
     Dates: start: 20100401, end: 20100525

REACTIONS (3)
  - LYMPHATIC SYSTEM NEOPLASM [None]
  - NASAL OEDEMA [None]
  - UPPER AIRWAY OBSTRUCTION [None]
